FAERS Safety Report 12204756 (Version 1)
Quarter: 2016Q1

REPORT INFORMATION
  Report Type: Spontaneous
  Country: US (occurrence: US)
  Receive Date: 20160323
  Receipt Date: 20160323
  Transmission Date: 20160526
  Serious: No
  Sender: FDA-Public Use
  Company Number: US-BIOGEN-2016BI00205920

PATIENT
  Sex: Female

DRUGS (1)
  1. TECFIDERA [Suspect]
     Active Substance: DIMETHYL FUMARATE
     Indication: MULTIPLE SCLEROSIS
     Route: 048
     Dates: start: 20160225

REACTIONS (8)
  - Malaise [Unknown]
  - Drug dose omission [Recovered/Resolved]
  - Injection site irritation [Unknown]
  - Sensory disturbance [Unknown]
  - Paraesthesia [Unknown]
  - Scab [Unknown]
  - Flushing [Unknown]
  - Contusion [Not Recovered/Not Resolved]
